FAERS Safety Report 13114904 (Version 1)
Quarter: 2017Q1

REPORT INFORMATION
  Report Type: Spontaneous
  Country: CN (occurrence: CN)
  Receive Date: 20170113
  Receipt Date: 20170113
  Transmission Date: 20170428
  Serious: Yes (Hospitalization)
  Sender: FDA-Public Use
  Company Number: CN-ELI_LILLY_AND_COMPANY-CN201701002374

PATIENT
  Sex: Female

DRUGS (3)
  1. NOVONORM [Concomitant]
     Active Substance: REPAGLINIDE
  2. HUMULIN N [Suspect]
     Active Substance: INSULIN HUMAN
     Dosage: 12 IU, EACH EVENING
     Route: 058
     Dates: end: 201612
  3. HUMULIN N [Suspect]
     Active Substance: INSULIN HUMAN
     Indication: DIABETES MELLITUS
     Dosage: 12 IU, EACH EVENING
     Route: 058
     Dates: start: 2014

REACTIONS (2)
  - Cardiac disorder [Unknown]
  - Diabetic nephropathy [Unknown]
